FAERS Safety Report 4379365-5 (Version None)
Quarter: 2004Q2

REPORT INFORMATION
  Report Type: 
  Country: None (occurrence: None)
  Receive Date: 20040614
  Receipt Date: 20040601
  Transmission Date: 20050107
  Serious: Yes (Death)
  Sender: FDA-Public Use
  Company Number: S04-USA-02803-01

PATIENT
  Age: 79 Year
  Sex: Male
  Weight: 83.9154 kg

DRUGS (7)
  1. NAMENDA [Suspect]
     Indication: DEMENTIA ALZHEIMER'S TYPE
     Dosage: 10 MG BID PO
     Route: 048
  2. NAMENDA [Suspect]
     Indication: DEMENTIA ALZHEIMER'S TYPE
  3. VALPROIC ACID [Concomitant]
  4. DONEPEZIL HCL [Concomitant]
  5. LEVOTHYROXINE SODIUM [Concomitant]
  6. VIAGRA [Concomitant]
  7. VITAMIN E [Concomitant]

REACTIONS (5)
  - CARDIO-RESPIRATORY ARREST [None]
  - CONVULSION [None]
  - CORONARY ARTERY OCCLUSION [None]
  - MYOCARDIAL INFARCTION [None]
  - SOMNOLENCE [None]
